FAERS Safety Report 19136841 (Version 3)
Quarter: 2021Q2

REPORT INFORMATION
  Report Type: Report from Study
  Country: US (occurrence: US)
  Receive Date: 20210414
  Receipt Date: 20210608
  Transmission Date: 20210717
  Serious: Yes (Other)
  Sender: FDA-Public Use
  Company Number: US-TAKEDA-2021TUS011390

PATIENT
  Sex: Female

DRUGS (1)
  1. CUVITRU [Suspect]
     Active Substance: HUMAN IMMUNOGLOBULIN G
     Indication: PRIMARY IMMUNODEFICIENCY SYNDROME
     Dosage: 12 GRAM, 1/WEEK
     Route: 058

REACTIONS (6)
  - Psoriatic arthropathy [Unknown]
  - Breast cancer stage I [Unknown]
  - Corneal infection [Unknown]
  - Weight increased [Unknown]
  - Fatigue [Unknown]
  - Skin cancer [Unknown]
